FAERS Safety Report 4838361-1 (Version None)
Quarter: 2005Q4

REPORT INFORMATION
  Report Type: 
  Country: None (occurrence: None)
  Receive Date: 20051123
  Receipt Date: 20051116
  Transmission Date: 20060501
  Serious: Yes (Hospitalization, Other)
  Sender: FDA-Public Use
  Company Number: 2005139348

PATIENT
  Age: 29 Year
  Sex: Female
  Weight: 47.1741 kg

DRUGS (17)
  1. SILDENAFIL CITRATE [Suspect]
     Indication: PULMONARY HYPERTENSION
     Dosage: 60 MG (20 MG, 3 IN 1 D), ORAL
     Route: 048
     Dates: start: 20050928
  2. FLOLAN [Suspect]
     Indication: PULMONARY HYPERTENSION
     Dosage: 41.5 NG/KG/MIN, INTRAVENOUS
     Route: 042
     Dates: start: 20050505
  3. LASIX [Concomitant]
  4. LEVAQUIN [Concomitant]
  5. SPIRONOLACTONE [Concomitant]
  6. LANOXIN [Concomitant]
  7. PREVACID [Concomitant]
  8. KLOR-CON [Concomitant]
  9. PROMETHAZINE [Concomitant]
  10. COUMADIN [Concomitant]
  11. TYLENOL [Concomitant]
  12. LOPERAMIDE HCL [Concomitant]
  13. ZOFRAN [Concomitant]
  14. LIBRAX [Concomitant]
  15. DOXEPIN (DOXEPIN) [Concomitant]
  16. FLUOCINONIDE [Concomitant]
  17. PRILOSEC [Concomitant]

REACTIONS (7)
  - CONDITION AGGRAVATED [None]
  - DISEASE PROGRESSION [None]
  - DRUG INTERACTION [None]
  - HYPOTENSION [None]
  - NAUSEA [None]
  - PULMONARY HYPERTENSION [None]
  - VOMITING [None]
